FAERS Safety Report 4881242-8 (Version None)
Quarter: 2005Q4

REPORT INFORMATION
  Report Type: 
  Country: None (occurrence: None)
  Receive Date: 20051201
  Receipt Date: 20050723
  Transmission Date: 20060501
  Serious: No
  Sender: FDA-Public Use
  Company Number: 2005PV000624

PATIENT
  Age: 50 Year
  Sex: Female
  Weight: 110.2241 kg

DRUGS (24)
  1. BYETTA [Suspect]
     Indication: DIABETES MELLITUS NON-INSULIN-DEPENDENT
     Dosage: 5 MCG; BID; SC
     Route: 058
     Dates: start: 20050722
  2. COREG [Suspect]
     Indication: BLOOD PRESSURE
     Dosage: 6.25 MG; BID; PO
     Route: 048
     Dates: start: 20050722
  3. METFORMIN HCL [Concomitant]
  4. AMARYL [Concomitant]
  5. AVANDIA [Concomitant]
  6. LOZOL [Concomitant]
  7. AVAPRO [Concomitant]
  8. ZETIA [Concomitant]
  9. K-DUR 10 [Concomitant]
  10. ASPIRIN [Concomitant]
  11. CLARITIN [Concomitant]
  12. PRILOSEC [Concomitant]
  13. IMDUR [Concomitant]
  14. FLAXSEED OIL [Concomitant]
  15. FISH OIL [Concomitant]
  16. NIACIN [Concomitant]
  17. ASCORBIC ACID [Concomitant]
  18. CRANBERRY [Concomitant]
  19. EVENING PRIMROSE OIL [Concomitant]
  20. VITAMIN B COMPLEX CAP [Concomitant]
  21. SOY [Concomitant]
  22. BILBERRY [Concomitant]
  23. VITAMIN E [Concomitant]
  24. MELATONIN [Concomitant]

REACTIONS (5)
  - BLOOD GLUCOSE DECREASED [None]
  - BLOOD GLUCOSE INCREASED [None]
  - DIZZINESS [None]
  - HEADACHE [None]
  - PRURITUS [None]
